FAERS Safety Report 18800276 (Version 1)
Quarter: 2021Q1

REPORT INFORMATION
  Report Type: Spontaneous
  Country: US (occurrence: US)
  Receive Date: 20210128
  Receipt Date: 20210128
  Transmission Date: 20210419
  Serious: No
  Sender: FDA-Public Use
  Company Number: None

PATIENT
  Age: 61 Year
  Sex: Female
  Weight: 68.4 kg

DRUGS (1)
  1. LEVOTHYROXINE 0.025MG TAB [Suspect]
     Active Substance: LEVOTHYROXINE SODIUM
     Indication: HYPOTHYROIDISM
     Dosage: ?          QUANTITY:1 TABLET(S);?
     Route: 048

REACTIONS (8)
  - Arthralgia [None]
  - Product quality issue [None]
  - Psychiatric symptom [None]
  - Lethargy [None]
  - Depression [None]
  - Myalgia [None]
  - Cognitive disorder [None]
  - Temperature intolerance [None]

NARRATIVE: CASE EVENT DATE: 20210115
